FAERS Safety Report 24545896 (Version 2)
Quarter: 2025Q3

REPORT INFORMATION
  Report Type: Spontaneous
  Country: JP (occurrence: JP)
  Receive Date: 20241024
  Receipt Date: 20250803
  Transmission Date: 20251021
  Serious: Yes (Other)
  Sender: ALEXION PHARMACEUTICALS
  Company Number: JP-ASTRAZENECA-240057714_013120_P_1

PATIENT
  Age: 74 Year
  Sex: Male

DRUGS (5)
  1. IMFINZI [Suspect]
     Active Substance: DURVALUMAB
     Indication: Bile duct cancer
     Dosage: 1500 MILLIGRAM, Q3W
     Dates: start: 20230124, end: 20230214
  2. GEMCITABINE HYDROCHLORIDE [Concomitant]
     Active Substance: GEMCITABINE HYDROCHLORIDE
     Indication: Bile duct cancer
     Route: 065
  3. CISPLATIN [Concomitant]
     Active Substance: CISPLATIN
     Indication: Bile duct cancer
  4. CISPLATIN [Concomitant]
     Active Substance: CISPLATIN
  5. CISPLATIN [Concomitant]
     Active Substance: CISPLATIN
     Route: 065

REACTIONS (3)
  - Immune-mediated encephalitis [Recovering/Resolving]
  - Immune-mediated enterocolitis [Recovering/Resolving]
  - Acute cholecystitis necrotic [Unknown]

NARRATIVE: CASE EVENT DATE: 20230212
